FAERS Safety Report 20287703 (Version 2)
Quarter: 2022Q2

REPORT INFORMATION
  Report Type: Report from Study
  Country: NL (occurrence: NL)
  Receive Date: 20220104
  Receipt Date: 20220629
  Transmission Date: 20220721
  Serious: Yes (Life-Threatening)
  Sender: FDA-Public Use
  Company Number: NL-ABBVIE-22K-114-4219363-00

PATIENT
  Sex: Female

DRUGS (4)
  1. CARBIDOPA\LEVODOPA [Suspect]
     Active Substance: CARBIDOPA\LEVODOPA
     Indication: Parkinson^s disease
     Dosage: MD 4.3 ML; CD 2.4 ML/H; ED 2.5 ML
     Route: 050
  2. CARBIDOPA\LEVODOPA [Suspect]
     Active Substance: CARBIDOPA\LEVODOPA
  3. POLYETHYLENE GLYCOLS [Concomitant]
     Active Substance: POLYETHYLENE GLYCOLS
     Indication: Defaecation disorder
  4. MICROLAX [Concomitant]
     Indication: Defaecation disorder

REACTIONS (9)
  - Terminal state [Not Recovered/Not Resolved]
  - Dyskinesia [Not Recovered/Not Resolved]
  - Unevaluable event [Not Recovered/Not Resolved]
  - Therapeutic product effect incomplete [Unknown]
  - General physical health deterioration [Not Recovered/Not Resolved]
  - Bedridden [Not Recovered/Not Resolved]
  - Syncope [Not Recovered/Not Resolved]
  - Dyschezia [Not Recovered/Not Resolved]
  - Fibroma [Not Recovered/Not Resolved]
